FAERS Safety Report 24769700 (Version 1)
Quarter: 2024Q4

REPORT INFORMATION
  Report Type: Report from Study
  Country: CA (occurrence: CA)
  Receive Date: 20241224
  Receipt Date: 20241224
  Transmission Date: 20250115
  Serious: Yes (Death)
  Sender: ROCHE
  Company Number: CA-ROCHE-10000165184

PATIENT
  Age: 64 Year
  Sex: Male

DRUGS (1)
  1. VABYSMO [Suspect]
     Active Substance: FARICIMAB-SVOA
     Indication: Diabetic retinal oedema
     Dosage: 6 MG/0.05 ML SOLUTION FOR INTRAVITREAL INJECTION
     Route: 050
     Dates: start: 20231025

REACTIONS (1)
  - Death [Fatal]
